FAERS Safety Report 15179631 (Version 1)
Quarter: 2018Q4

REPORT INFORMATION
  Report Type: Spontaneous
  Country: US (occurrence: US)
  Receive Date: 20180723
  Receipt Date: 20180723
  Transmission Date: 20190204
  Serious: No
  Sender: FDA-Public Use
  Company Number: US-TEVA-790402USA

PATIENT
  Sex: Female

DRUGS (1)
  1. NICOTINE ICE MINT [Suspect]
     Active Substance: NICOTINE

REACTIONS (1)
  - Tooth fracture [Unknown]
